FAERS Safety Report 16153287 (Version 4)
Quarter: 2019Q2

REPORT INFORMATION
  Report Type: Spontaneous
  Country: TW (occurrence: TW)
  Receive Date: 20190403
  Receipt Date: 20190514
  Transmission Date: 20190711
  Serious: Yes (Hospitalization, Other)
  Sender: FDA-Public Use
  Company Number: TW-PFIZER INC-2019108239

PATIENT
  Age: 73 Year
  Sex: Male

DRUGS (2)
  1. XYNTHA [Suspect]
     Active Substance: ANTIHEMOPHILIC FACTOR, HUMAN RECOMBINANT RESIDUES 743-1636 DELETED
     Indication: FACTOR VIII DEFICIENCY
     Dosage: 2000 IU, AS NEEDED
     Route: 042
     Dates: start: 20180720
  2. XYNTHA [Suspect]
     Active Substance: ANTIHEMOPHILIC FACTOR, HUMAN RECOMBINANT RESIDUES 743-1636 DELETED
     Dosage: 1000 IU, CYCLIC (EVERY MONDAY, WEDNESDAY AND FRIDAY)
     Route: 042

REACTIONS (11)
  - Dysstasia [Recovering/Resolving]
  - Cerebral haemorrhage [Recovering/Resolving]
  - Dizziness [Recovering/Resolving]
  - Arthralgia [Recovering/Resolving]
  - Muscular weakness [Recovered/Resolved]
  - Pneumonitis [Recovering/Resolving]
  - Mobility decreased [Recovering/Resolving]
  - Fall [Recovering/Resolving]
  - Gait inability [Recovering/Resolving]
  - Post procedural haemorrhage [Recovering/Resolving]
  - Productive cough [Recovering/Resolving]

NARRATIVE: CASE EVENT DATE: 20190308
